FAERS Safety Report 8229233-3 (Version None)
Quarter: 2012Q1

REPORT INFORMATION
  Report Type: 
  Country: None (occurrence: None)
  Receive Date: 20120322
  Receipt Date: 20120312
  Transmission Date: 20120608
  Serious: Yes (Life-Threatening, Hospitalization)
  Sender: FDA-Public Use
  Company Number: DE-TEVA-328225GER

PATIENT
  Sex: Male

DRUGS (1)
  1. COPAXONE [Suspect]
     Indication: RELAPSING-REMITTING MULTIPLE SCLEROSIS
     Dates: start: 20120223, end: 20120223

REACTIONS (5)
  - EXTRADURAL HAEMATOMA [None]
  - LOSS OF CONSCIOUSNESS [None]
  - BRAIN CONTUSION [None]
  - CRANIOCEREBRAL INJURY [None]
  - HYPOTONIA [None]
